FAERS Safety Report 16741212 (Version 4)
Quarter: 2020Q1

REPORT INFORMATION
  Report Type: Report from Study
  Country: CA (occurrence: CA)
  Receive Date: 20190826
  Receipt Date: 20200220
  Transmission Date: 20200409
  Serious: Yes (Other)
  Sender: FDA-Public Use
  Company Number: CA-JNJFOC-20190824373

PATIENT
  Age: 50 Year
  Sex: Female
  Weight: 72.57 kg

DRUGS (2)
  1. STELARA [Suspect]
     Active Substance: USTEKINUMAB
     Route: 058
  2. STELARA [Suspect]
     Active Substance: USTEKINUMAB
     Indication: CROHN^S DISEASE
     Route: 058
     Dates: start: 20180322

REACTIONS (2)
  - Abdominal pain [Unknown]
  - Intestinal resection [Unknown]

NARRATIVE: CASE EVENT DATE: 201908
